FAERS Safety Report 7596782 (Version 4)
Quarter: 2014Q4

REPORT INFORMATION
  Report Type: Report from Study
  Country: JP (occurrence: JP)
  Receive Date: 20100920
  Receipt Date: 20141016
  Transmission Date: 20150529
  Serious: Yes (Hospitalization, Other)
  Sender: FDA-Public Use
  Company Number: JP-SHIRE-SPV1-2010-01551

PATIENT
  Age: 58 Year
  Sex: Female

DRUGS (25)
  1. CALTAN [Concomitant]
     Active Substance: CALCIUM CARBONATE
     Indication: HYPERPHOSPHATAEMIA
     Dosage: 4500 MG, UNKNOWN
     Route: 048
     Dates: start: 20090718, end: 20090817
  2. OXAROL [Concomitant]
     Active Substance: MAXACALCITOL
     Indication: PRODUCT USED FOR UNKNOWN INDICATION
     Dosage: 15 ?G, 1X/WEEK
     Route: 042
     Dates: start: 20040720, end: 20100803
  3. ALOSITOL [Concomitant]
     Active Substance: ALLOPURINOL
     Indication: PRODUCT USED FOR UNKNOWN INDICATION
     Dosage: 100 MG, UNKNOWN
     Route: 048
     Dates: start: 20080426
  4. MICARDIS [Concomitant]
     Active Substance: TELMISARTAN
     Indication: PRODUCT USED FOR UNKNOWN INDICATION
     Dosage: 40 MG, UNKNOWN
     Route: 048
     Dates: start: 20090912
  5. CALTAN [Concomitant]
     Active Substance: CALCIUM CARBONATE
     Dosage: 1500 UNK, UNK
     Route: 048
     Dates: start: 20110212, end: 20111108
  6. CALTAN [Concomitant]
     Active Substance: CALCIUM CARBONATE
     Dosage: 3000 UNK, UNK
     Route: 048
     Dates: start: 20111111, end: 20140130
  7. OXAROL [Concomitant]
     Active Substance: MAXACALCITOL
     Dosage: 7.5 ?G, 1X/WEEK
     Route: 042
     Dates: start: 20130117
  8. PLETAAL [Concomitant]
     Active Substance: CILOSTAZOL
     Indication: PRODUCT USED FOR UNKNOWN INDICATION
     Dosage: 200 MG, UNKNOWN
     Route: 048
     Dates: start: 20030218
  9. RISUMIC [Concomitant]
     Active Substance: AMEZINIUM METILSULFATE
     Indication: PROCEDURAL HYPOTENSION
     Dosage: 10 MG, UNKNOWN
     Route: 048
  10. SEVELAMER HYDROCHLORIDE [Concomitant]
     Active Substance: SEVELAMER HYDROCHLORIDE
     Indication: HYPERPHOSPHATAEMIA
     Dosage: 1500 MG, UNKNOWN
     Route: 048
     Dates: start: 20101009, end: 20110115
  11. FULSTAN [Concomitant]
     Dosage: 0.15 ?G, UNK
     Route: 048
     Dates: start: 20140109
  12. REGPARA [Concomitant]
     Active Substance: CINACALCET HYDROCHLORIDE
     Indication: HYPERPARATHYROIDISM SECONDARY
     Dosage: 25 MG, UNKNOWN
     Route: 048
     Dates: start: 20101228
  13. CALTAN [Concomitant]
     Active Substance: CALCIUM CARBONATE
     Dosage: 3000 MG, UNKNOWN
     Route: 048
     Dates: start: 20090818, end: 20091007
  14. CALTAN [Concomitant]
     Active Substance: CALCIUM CARBONATE
     Dosage: 6000 UNK, UNK
     Route: 048
     Dates: start: 20140610
  15. LAC B [Concomitant]
     Active Substance: BIFIDOBACTERIUM SPP.
     Indication: PRODUCT USED FOR UNKNOWN INDICATION
     Dosage: 2 G, UNKNOWN
     Route: 048
     Dates: start: 20030218
  16. FOSRENOL [Suspect]
     Active Substance: LANTHANUM CARBONATE
     Indication: HYPERPHOSPHATAEMIA
     Dosage: 750 MG, TOTAL DAILY DOSE (IMMEDIATELY AFTER MEALS)
     Route: 048
     Dates: start: 20090718
  17. CALTAN [Concomitant]
     Active Substance: CALCIUM CARBONATE
     Dosage: 1500 MG, UNKNOWN
     Route: 048
     Dates: start: 20091010, end: 20100805
  18. MUCOSTA [Concomitant]
     Active Substance: REBAMIPIDE
     Indication: PRODUCT USED FOR UNKNOWN INDICATION
     Dosage: 300 MG, UNKNOWN
     Route: 048
     Dates: start: 20030218
  19. METHYCOBAL [Concomitant]
     Active Substance: METHYLCOBALAMIN
     Indication: PRODUCT USED FOR UNKNOWN INDICATION
     Dosage: 1500 UG, UNKNOWN
     Route: 048
     Dates: start: 20060810
  20. FULSTAN [Concomitant]
     Indication: PRODUCT USED FOR UNKNOWN INDICATION
     Dosage: 0.15 ?G, UNKNOWN
     Route: 048
     Dates: start: 20110412, end: 20130116
  21. CALTAN [Concomitant]
     Active Substance: CALCIUM CARBONATE
     Dosage: 4500 UNK, UNK
     Route: 048
     Dates: start: 20140131, end: 20140609
  22. OXAROL [Concomitant]
     Active Substance: MAXACALCITOL
     Dosage: 30 ?G, 1X/WEEK
     Route: 042
     Dates: start: 20101002, end: 20101230
  23. OXAROL [Concomitant]
     Active Substance: MAXACALCITOL
     Dosage: 15 ?G, 1X/WEEK
     Route: 042
     Dates: start: 20110101, end: 20110409
  24. ACINON [Concomitant]
     Active Substance: NIZATIDINE
     Indication: PRODUCT USED FOR UNKNOWN INDICATION
     Dosage: 150 MG, UNKNOWN
     Route: 048
     Dates: start: 20030218
  25. OXAROL [Concomitant]
     Active Substance: MAXACALCITOL
     Dosage: 7.5 ?G, 1X/WEEK
     Route: 042
     Dates: start: 20100805, end: 20100930

REACTIONS (16)
  - Neck pain [Recovered/Resolved]
  - Hypertension [Recovering/Resolving]
  - Back pain [Recovering/Resolving]
  - Insomnia [Recovered/Resolved]
  - Abdominal pain upper [Recovered/Resolved]
  - Atrial fibrillation [Recovered/Resolved]
  - Productive cough [Recovered/Resolved]
  - Hyperparathyroidism secondary [Unknown]
  - Diarrhoea [Recovered/Resolved]
  - Constipation [Recovering/Resolving]
  - Peritonitis [Recovering/Resolving]
  - Cervicobrachial syndrome [Recovering/Resolving]
  - Cough [Recovered/Resolved]
  - Eye pruritus [Recovering/Resolving]
  - Nasopharyngitis [Recovered/Resolved]
  - Pain [Unknown]

NARRATIVE: CASE EVENT DATE: 20090818
